FAERS Safety Report 6646305-5 (Version None)
Quarter: 2010Q1

REPORT INFORMATION
  Report Type: 
  Country: None (occurrence: None)
  Receive Date: 20100322
  Receipt Date: 20100322
  Transmission Date: 20100710
  Serious: Yes (Other)
  Sender: FDA-Public Use
  Company Number: None

PATIENT
  Sex: Female
  Weight: 68.0396 kg

DRUGS (4)
  1. LEVOTHYROXINE SODIUM [Suspect]
     Indication: THYROID DISORDER
     Dosage: 100 MG DAILY
     Dates: start: 20100201
  2. BENADRY [Concomitant]
     Dosage: SHOT
     Route: 011
  3. METHYLPREDNISOLONE [Concomitant]
  4. PREDNISONE [Concomitant]
     Dosage: SHOT

REACTIONS (1)
  - HYPERSENSITIVITY [None]
